FAERS Safety Report 15271286 (Version 1)
Quarter: 2018Q3

REPORT INFORMATION
  Report Type: Spontaneous
  Country: US (occurrence: US)
  Receive Date: 20180813
  Receipt Date: 20180813
  Transmission Date: 20181010
  Serious: Yes (Hospitalization)
  Sender: FDA-Public Use
  Company Number: US-PFIZER INC-2018322377

PATIENT
  Age: 36 Year
  Sex: Male

DRUGS (1)
  1. MEDROXYPROGESTERONE ACETATE. [Suspect]
     Active Substance: MEDROXYPROGESTERONE ACETATE
     Indication: SCHIZOPHRENIA
     Dosage: 10 MG, 3X/DAY

REACTIONS (2)
  - Off label use [Unknown]
  - Laboratory test abnormal [Unknown]
